FAERS Safety Report 21934767 (Version 1)
Quarter: 2023Q1

REPORT INFORMATION
  Report Type: Report from Study
  Country: CN (occurrence: None)
  Receive Date: 20230201
  Receipt Date: 20230201
  Transmission Date: 20230418
  Serious: Yes (Other)
  Sender: FDA-Public Use
  Company Number: CN-ADIENNEP-2023AD000074

PATIENT
  Age: 61 Year
  Sex: Male

DRUGS (5)
  1. THIOTEPA [Suspect]
     Active Substance: THIOTEPA
     Indication: Autologous haematopoietic stem cell transplant
     Dosage: 250 MG/M2 IV ON DAY -6 TO DAY -5
     Route: 042
  2. BUSULFAN [Suspect]
     Active Substance: BUSULFAN
     Indication: Autologous haematopoietic stem cell transplant
     Dosage: 3.2 MG/KG IV ON DAY -9 TO DAY -7
     Route: 042
  3. CYCLOPHOSPHAMIDE [Suspect]
     Active Substance: CYCLOPHOSPHAMIDE
     Indication: Autologous haematopoietic stem cell transplant
     Dosage: 200 MG/M2 IV ON DAY -4 TO DAY -3
     Route: 042
  4. ACYCLOVIR [Suspect]
     Active Substance: ACYCLOVIR
     Indication: Prophylaxis
     Dosage: FROM DAY 1 ()
  5. FILGRASTIM [Suspect]
     Active Substance: FILGRASTIM
     Dosage: 7-10 UG/KGX4 DAYS, FROM DAY 3 ()

REACTIONS (5)
  - Haematotoxicity [Unknown]
  - Pyrexia [Unknown]
  - Hepatotoxicity [Unknown]
  - Gastrointestinal toxicity [Unknown]
  - Blood creatinine increased [Unknown]
